FAERS Safety Report 9628303 (Version 3)
Quarter: 2013Q4

REPORT INFORMATION
  Report Type: Spontaneous
  Country: IT (occurrence: IT)
  Receive Date: 20131017
  Receipt Date: 20131219
  Transmission Date: 20140711
  Serious: Yes (Hospitalization)
  Sender: FDA-Public Use
  Company Number: IT-BRISTOL-MYERS SQUIBB COMPANY-19507441

PATIENT
  Age: 72 Year
  Sex: Male

DRUGS (5)
  1. COUMADIN TABS 5 MG [Suspect]
     Dosage: LAST DOSE:12AUG13.
     Route: 048
     Dates: start: 20000101, end: 20130812
  2. FELDENE [Suspect]
     Indication: BACK PAIN
     Dosage: LAST DOSE:12AUG13.
     Route: 030
     Dates: start: 20130807, end: 20130812
  3. LANOXIN [Concomitant]
     Dosage: TABS
  4. ZYLORIC [Concomitant]
     Dosage: TABS
  5. PANTOPRAZOLE [Concomitant]
     Dosage: TABS?PRODUCT FORMULATION:PANTOPRAZOLE DOC GENERICS

REACTIONS (4)
  - Gastrointestinal haemorrhage [Recovering/Resolving]
  - Hyperhidrosis [Recovering/Resolving]
  - Diarrhoea [Recovering/Resolving]
  - Presyncope [Recovering/Resolving]
